FAERS Safety Report 26125092 (Version 1)
Quarter: 2025Q4

REPORT INFORMATION
  Report Type: Spontaneous
  Country: GB (occurrence: GB)
  Receive Date: 20251205
  Receipt Date: 20251205
  Transmission Date: 20260117
  Serious: Yes (Death, Life-Threatening, Other)
  Sender: RANBAXY
  Company Number: GB-MHRA-MED-202511190852014380-KTFDB

PATIENT
  Sex: Male

DRUGS (2)
  1. SERTRALINE [Suspect]
     Active Substance: SERTRALINE HYDROCHLORIDE
     Indication: Agitation
     Dosage: UNKNOWN
     Route: 065
     Dates: start: 20211005, end: 20211012
  2. Sleeping [Concomitant]
     Indication: Insomnia
     Dosage: UNK
     Route: 065

REACTIONS (4)
  - Completed suicide [Fatal]
  - Suicidal ideation [Not Recovered/Not Resolved]
  - Agitation [Unknown]
  - Insomnia [Unknown]
